FAERS Safety Report 6616034-2 (Version None)
Quarter: 2010Q1

REPORT INFORMATION
  Report Type: 
  Country: None (occurrence: None)
  Receive Date: 20100305
  Receipt Date: 20100301
  Transmission Date: 20100710
  Serious: Yes (Other)
  Sender: FDA-Public Use
  Company Number: B0636918A

PATIENT
  Age: 83 Year
  Sex: Male

DRUGS (2)
  1. ARIXTRA [Suspect]
     Indication: DRUG USE FOR UNKNOWN INDICATION
     Dosage: 1UNIT PER DAY
     Route: 051
     Dates: start: 20091211, end: 20091214
  2. ROCEPHIN [Suspect]
     Indication: PULMONARY SEPSIS
     Route: 051
     Dates: start: 20091208, end: 20091221

REACTIONS (1)
  - DERMATITIS BULLOUS [None]
